FAERS Safety Report 4587664-7 (Version None)
Quarter: 2005Q1

REPORT INFORMATION
  Report Type: 
  Country: None (occurrence: None)
  Receive Date: 20050215
  Receipt Date: 20030606
  Transmission Date: 20050727
  Serious: Yes (Other)
  Sender: FDA-Public Use
  Company Number: 174180

PATIENT
  Age: 62 Year
  Sex: Female
  Weight: 56.6996 kg

DRUGS (7)
  1. AVONEX [Suspect]
     Indication: MULTIPLE SCLEROSIS
     Dosage: 30 UG; QW; IM
     Route: 030
     Dates: start: 20000101, end: 20000101
  2. AVONEX [Suspect]
     Indication: MULTIPLE SCLEROSIS
     Dosage: 30 UG; QW; IM
     Route: 030
     Dates: start: 20030404
  3. OSC-CAL [Concomitant]
  4. VITAMIN C [Concomitant]
  5. ESTROGEN [Concomitant]
  6. PROTONIX [Concomitant]
  7. ZOCOR [Concomitant]

REACTIONS (7)
  - AORTIC DILATATION [None]
  - CARDIAC VALVE DISEASE [None]
  - CARDIOMEGALY [None]
  - CONSTIPATION [None]
  - HYPERTENSION [None]
  - INJECTION SITE PAIN [None]
  - PALPITATIONS [None]
